FAERS Safety Report 8096786-8 (Version None)
Quarter: 2012Q1

REPORT INFORMATION
  Report Type: 
  Country: None (occurrence: None)
  Receive Date: 20120129
  Receipt Date: 20111202
  Transmission Date: 20120608
  Serious: No
  Sender: FDA-Public Use
  Company Number: US-ABBOTT-11P-163-0880380-00

PATIENT

DRUGS (2)
  1. YELLOW FEVER VACCINES [Concomitant]
     Indication: PROPHYLAXIS
     Dosage: NOT REPORTED
  2. HUMIRA [Suspect]
     Indication: PRODUCT USED FOR UNKNOWN INDICATION

REACTIONS (3)
  - YELLOW FEVER IMMUNISATION [None]
  - CONTRAINDICATION TO VACCINATION [None]
  - MEDICATION ERROR [None]
